FAERS Safety Report 21130514 (Version 13)
Quarter: 2022Q4

REPORT INFORMATION
  Report Type: Report from Study
  Country: KR (occurrence: KR)
  Receive Date: 20220726
  Receipt Date: 20221020
  Transmission Date: 20230113
  Serious: Yes (Death, Life-Threatening, Hospitalization, Other)
  Sender: FDA-Public Use
  Company Number: KR-OTSUKA-2022_037717

PATIENT
  Age: 26 Year
  Sex: Female

DRUGS (23)
  1. PONATINIB [Suspect]
     Active Substance: PONATINIB
     Indication: Philadelphia positive acute lymphocytic leukaemia
     Dosage: 60 MILLIGRAM, QD
     Route: 048
     Dates: start: 20220620, end: 20220620
  2. PONATINIB [Suspect]
     Active Substance: PONATINIB
     Dosage: 30 MILLIGRAM, QD
     Route: 048
     Dates: start: 20220621, end: 20220713
  3. SULFAMETHOXAZOLE\TRIMETHOPRIM [Concomitant]
     Active Substance: SULFAMETHOXAZOLE\TRIMETHOPRIM
     Indication: Infection prophylaxis
     Dosage: UNK UNK, QD
     Route: 048
     Dates: start: 20220620, end: 20220713
  4. Q pam [Concomitant]
     Indication: Seizure
     Dosage: UNK UNK, BID
     Route: 042
     Dates: start: 20220621, end: 20220727
  5. HUMEDIX DEXAMETHASONE SODIUM PHOSPHATE [Concomitant]
     Indication: Intracranial pressure increased
     Dosage: UNK UNK, BID
     Route: 042
     Dates: start: 20220625, end: 20220707
  6. HUMEDIX DEXAMETHASONE SODIUM PHOSPHATE [Concomitant]
     Indication: Intracranial mass
     Dosage: UNK UNK, QD
     Route: 042
     Dates: start: 20220708, end: 20220711
  7. HUMEDIX DEXAMETHASONE SODIUM PHOSPHATE [Concomitant]
     Indication: Hydrocephalus
  8. MORPHINE HYDROCHLORIDE [Concomitant]
     Active Substance: MORPHINE HYDROCHLORIDE
     Indication: Intracranial pressure increased
     Dosage: UNK
     Route: 042
     Dates: start: 20220630, end: 20220701
  9. MORPHINE HYDROCHLORIDE [Concomitant]
     Active Substance: MORPHINE HYDROCHLORIDE
     Indication: Intracranial mass
     Dosage: UNK
     Route: 042
     Dates: start: 20220703, end: 20220705
  10. MORPHINE HYDROCHLORIDE [Concomitant]
     Active Substance: MORPHINE HYDROCHLORIDE
     Indication: Hydrocephalus
  11. MANNITOL [Concomitant]
     Active Substance: MANNITOL
     Indication: Intracranial pressure increased
     Dosage: UNK, BID
     Route: 042
     Dates: start: 20220629, end: 20220630
  12. MANNITOL [Concomitant]
     Active Substance: MANNITOL
     Indication: Intracranial mass
     Dosage: UNK UNK, TID
     Route: 042
     Dates: start: 20220701, end: 20220701
  13. MANNITOL [Concomitant]
     Active Substance: MANNITOL
     Indication: Hydrocephalus
     Dosage: UNK UNK, QID
     Route: 042
     Dates: start: 20220702, end: 20220702
  14. MANNITOL [Concomitant]
     Active Substance: MANNITOL
     Dosage: UNK UNK, TID
     Route: 042
     Dates: start: 20220703, end: 20220703
  15. MANNITOL [Concomitant]
     Active Substance: MANNITOL
     Dosage: UNK UNK, Q4HR
     Route: 042
     Dates: start: 20220704, end: 20220704
  16. MANNITOL [Concomitant]
     Active Substance: MANNITOL
     Dosage: UNK UNK, TID
     Route: 042
     Dates: start: 20220705, end: 20220705
  17. MANNITOL [Concomitant]
     Active Substance: MANNITOL
     Dosage: UNK UNK, QID
     Route: 042
     Dates: start: 20220707, end: 20220708
  18. MANNITOL [Concomitant]
     Active Substance: MANNITOL
     Dosage: UNK UNK, BID
     Route: 042
     Dates: start: 20220709, end: 20220710
  19. MANNITOL [Concomitant]
     Active Substance: MANNITOL
     Dosage: UNK UNK, QD
     Route: 042
     Dates: start: 20220711, end: 20220711
  20. PREDNISOLONE [Concomitant]
     Active Substance: PREDNISOLONE
     Indication: Acute lymphocytic leukaemia
     Dosage: UNK UNK, QD
     Route: 048
     Dates: start: 20220711, end: 20220713
  21. HEPA MERZ [Concomitant]
     Indication: Liver function test increased
     Dosage: UNK UNK, QD
     Route: 042
     Dates: start: 20220712, end: 20220712
  22. Pennel [Concomitant]
     Indication: Liver function test increased
     Dosage: UNK UNK, TID
     Route: 048
     Dates: start: 20220711, end: 20220713
  23. PIPERACILLIN SODIUM\TAZOBACTAM SODIUM [Concomitant]
     Active Substance: PIPERACILLIN SODIUM\TAZOBACTAM SODIUM
     Indication: Infection
     Dosage: UNK UNK, TID
     Route: 042
     Dates: start: 20220713, end: 20220715

REACTIONS (2)
  - Philadelphia positive acute lymphocytic leukaemia [Fatal]
  - Pneumatosis intestinalis [Not Recovered/Not Resolved]

NARRATIVE: CASE EVENT DATE: 20220713
